FAERS Safety Report 8828161 (Version 1)
Quarter: 2012Q4

REPORT INFORMATION
  Report Type: 
  Country: US (occurrence: US)
  Receive Date: 20121005
  Receipt Date: 20121005
  Transmission Date: 20130627
  Serious: No
  Sender: FDA-Public Use
  Company Number: US-PFIZER INC-2012246252

PATIENT
  Sex: Female

DRUGS (2)
  1. LYRICA [Suspect]
     Dosage: 75 mg, UNK
  2. LYRICA [Suspect]
     Dosage: 150 mg, 2x/day

REACTIONS (1)
  - Drug ineffective [Unknown]
